FAERS Safety Report 25549091 (Version 2)
Quarter: 2025Q3

REPORT INFORMATION
  Report Type: Report from Study
  Country: US (occurrence: US)
  Receive Date: 20250714
  Receipt Date: 20250716
  Transmission Date: 20251021
  Serious: Yes (Other)
  Sender: ROCHE
  Company Number: US-ROCHE-10000335782

PATIENT
  Age: 81 Year
  Sex: Female

DRUGS (7)
  1. VABYSMO [Suspect]
     Active Substance: FARICIMAB-SVOA
     Indication: Neovascular age-related macular degeneration
     Route: 050
     Dates: start: 20230201
  2. VABYSMO [Suspect]
     Active Substance: FARICIMAB-SVOA
     Dosage: DATE OF SERVICE: 10-FEB-2025, 10-APR-2025, 23-MAY-2025, 09-JUL-2025
     Route: 050
  3. VABYSMO [Suspect]
     Active Substance: FARICIMAB-SVOA
  4. VABYSMO [Suspect]
     Active Substance: FARICIMAB-SVOA
  5. SPIRONOLACTONE [Concomitant]
     Active Substance: SPIRONOLACTONE
  6. SIMVASTATIN [Concomitant]
     Active Substance: SIMVASTATIN
  7. SERTRALINE [Concomitant]
     Active Substance: SERTRALINE HYDROCHLORIDE

REACTIONS (2)
  - Blindness unilateral [Unknown]
  - Off label use [Unknown]

NARRATIVE: CASE EVENT DATE: 20230701
